FAERS Safety Report 5993748-9 (Version None)
Quarter: 2008Q4

REPORT INFORMATION
  Report Type: 
  Country: None (occurrence: None)
  Receive Date: 20081212
  Receipt Date: 20081210
  Transmission Date: 20090506
  Serious: Yes (Disabling)
  Sender: FDA-Public Use
  Company Number: MY-ASTRAZENECA-2008AP09531

PATIENT
  Age: 42 Year
  Sex: Male

DRUGS (1)
  1. NEXIUM [Suspect]
     Indication: GASTROOESOPHAGEAL REFLUX DISEASE
     Route: 048
     Dates: start: 20080128

REACTIONS (3)
  - ASTHENIA [None]
  - IMPAIRED WORK ABILITY [None]
  - LETHARGY [None]
